FAERS Safety Report 25223445 (Version 1)
Quarter: 2025Q2

REPORT INFORMATION
  Report Type: Spontaneous
  Country: CN (occurrence: CN)
  Receive Date: 20250422
  Receipt Date: 20250422
  Transmission Date: 20250717
  Serious: Yes (Hospitalization, Other)
  Sender: ROCHE
  Company Number: CN-ROCHE-10000257118

PATIENT
  Age: 48 Year
  Sex: Female

DRUGS (17)
  1. MYCOPHENOLATE MOFETIL [Suspect]
     Active Substance: MYCOPHENOLATE MOFETIL
     Indication: Prophylaxis against transplant rejection
     Route: 048
     Dates: start: 201610
  2. MYCOPHENOLATE MOFETIL [Suspect]
     Active Substance: MYCOPHENOLATE MOFETIL
     Route: 048
     Dates: start: 202404
  3. TACROLIMUS [Suspect]
     Active Substance: TACROLIMUS
     Indication: Prophylaxis against transplant rejection
     Route: 065
     Dates: start: 202304
  4. TACROLIMUS [Suspect]
     Active Substance: TACROLIMUS
     Route: 065
     Dates: start: 202305
  5. TACROLIMUS [Suspect]
     Active Substance: TACROLIMUS
     Route: 065
     Dates: start: 201610
  6. TACROLIMUS [Suspect]
     Active Substance: TACROLIMUS
     Route: 065
     Dates: start: 202311
  7. TACROLIMUS [Suspect]
     Active Substance: TACROLIMUS
     Route: 065
     Dates: start: 202312
  8. TACROLIMUS [Suspect]
     Active Substance: TACROLIMUS
     Route: 065
     Dates: start: 202404
  9. PREDNISOLONE [Suspect]
     Active Substance: PREDNISOLONE
     Indication: Prophylaxis against transplant rejection
     Route: 065
     Dates: start: 202304
  10. PREDNISOLONE [Suspect]
     Active Substance: PREDNISOLONE
     Route: 065
     Dates: start: 202305
  11. PREDNISOLONE [Suspect]
     Active Substance: PREDNISOLONE
     Route: 065
     Dates: start: 201610
  12. PREDNISOLONE [Suspect]
     Active Substance: PREDNISOLONE
     Route: 065
     Dates: start: 202311
  13. PREDNISOLONE [Suspect]
     Active Substance: PREDNISOLONE
     Route: 065
     Dates: start: 202312
  14. PREDNISOLONE [Suspect]
     Active Substance: PREDNISOLONE
     Route: 065
     Dates: start: 202404
  15. MIZORIBINE [Suspect]
     Active Substance: MIZORIBINE
     Indication: Prophylaxis against transplant rejection
     Route: 065
     Dates: start: 202304
  16. MIZORIBINE [Suspect]
     Active Substance: MIZORIBINE
     Route: 065
     Dates: start: 202305
  17. METHYLPREDNISOLONE [Suspect]
     Active Substance: METHYLPREDNISOLONE
     Indication: Prophylaxis against transplant rejection
     Route: 042

REACTIONS (14)
  - Urinary tract infection [Recovering/Resolving]
  - Disseminated Escherichia infection [Recovering/Resolving]
  - Sepsis [Unknown]
  - Organ failure [Recovering/Resolving]
  - Haemorrhagic cyst [Recovering/Resolving]
  - Klebsiella sepsis [Recovering/Resolving]
  - BK virus infection [Recovering/Resolving]
  - Human herpesvirus 6 infection [Recovering/Resolving]
  - Fungal infection [Unknown]
  - Nephrolithiasis [Recovering/Resolving]
  - Staphylococcal infection [Recovering/Resolving]
  - Enterococcal infection [Recovering/Resolving]
  - Haematological infection [Recovering/Resolving]
  - Klebsiella infection [Recovering/Resolving]

NARRATIVE: CASE EVENT DATE: 20230401
